FAERS Safety Report 21792889 (Version 1)
Quarter: 2022Q4

REPORT INFORMATION
  Report Type: Report from Study
  Country: CZ (occurrence: CZ)
  Receive Date: 20221229
  Receipt Date: 20221229
  Transmission Date: 20230113
  Serious: Yes (Death)
  Sender: FDA-Public Use
  Company Number: CZ-BIOGEN-2022BI01178141

PATIENT
  Age: 39 Year
  Sex: Male

DRUGS (1)
  1. TYSABRI [Suspect]
     Active Substance: NATALIZUMAB
     Indication: Product used for unknown indication
     Route: 050
     Dates: start: 20091001

REACTIONS (1)
  - Death [Fatal]

NARRATIVE: CASE EVENT DATE: 20210323
